FAERS Safety Report 8577500-6 (Version None)
Quarter: 2012Q3

REPORT INFORMATION
  Report Type: 
  Country: None (occurrence: None)
  Receive Date: 20120807
  Receipt Date: 20120731
  Transmission Date: 20120928
  Serious: Yes (Other)
  Sender: FDA-Public Use
  Company Number: BR-PFIZER INC-2012186545

PATIENT
  Age: 73 Year
  Sex: Female

DRUGS (1)
  1. LATANOPROST [Suspect]
     Dosage: 6 UG, 1X/DAY (TWO DROPS EACH EYE ONCE A DAY)
     Route: 047

REACTIONS (3)
  - FALL [None]
  - OFF LABEL USE [None]
  - JOINT DISLOCATION [None]
